FAERS Safety Report 20656089 (Version 1)
Quarter: 2022Q1

REPORT INFORMATION
  Report Type: Report from Study
  Country: US (occurrence: US)
  Receive Date: 20220330
  Receipt Date: 20220330
  Transmission Date: 20220423
  Serious: Yes (Hospitalization, Other)
  Sender: FDA-Public Use
  Company Number: US-BRISTOL-MYERS SQUIBB COMPANY-2022-012351

PATIENT
  Age: 61 Year
  Sex: Male
  Weight: 90.72 kg

DRUGS (3)
  1. REVLIMID [Suspect]
     Active Substance: LENALIDOMIDE
     Indication: Plasma cell myeloma in remission
     Route: 048
     Dates: start: 20210813
  2. REVLIMID [Suspect]
     Active Substance: LENALIDOMIDE
     Indication: Respiratory syncytial virus bronchiolitis
  3. REVLIMID [Suspect]
     Active Substance: LENALIDOMIDE
     Indication: Oedema

REACTIONS (2)
  - Generalised oedema [Unknown]
  - Capillary leak syndrome [Unknown]

NARRATIVE: CASE EVENT DATE: 20220307
